FAERS Safety Report 9096631 (Version 2)
Quarter: 2013Q2

REPORT INFORMATION
  Report Type: Spontaneous
  Country: US (occurrence: None)
  Receive Date: 20130124
  Receipt Date: 20130402
  Transmission Date: 20140414
  Serious: Yes (Hospitalization)
  Sender: FDA-Public Use
  Company Number: 2013-0078

PATIENT
  Age: 75 Year
  Sex: Male

DRUGS (10)
  1. CARFILZOMIB [Suspect]
     Indication: PLASMA CELL MYELOMA
     Route: 042
  2. DEXAMETHASONE (DEXAMETHASONE) (DEXAMETHASONE) [Concomitant]
  3. ACYCLOVIR (ACICLOVIR) (ACICLOVIR) [Concomitant]
  4. ATORVASTATIN (ATORVASTATIN) (ATORVASTATIN) [Concomitant]
  5. PROZAC (FLUOXETINE HYDROCHLORIDE) (FLUOXETINE HYDROCHLORIDE) [Concomitant]
  6. K-DUR (POTASSIUM CHLORIDE) (POTASSIUM CHLORIDE) [Concomitant]
  7. OMEPRAZOLE (OMEPRAZOLE) (OMEPRAZOLE) [Concomitant]
  8. OXYCODONE (OXYCODONE) (OXYCODONE) [Concomitant]
  9. SALSALATE (SALSALATE) (SALSALATE) [Concomitant]
  10. COUMADIN (WARFARIN SODIUM) (WARFARIN SODIUM) [Concomitant]

REACTIONS (2)
  - Infusion site cellulitis [None]
  - Infusion site extravasation [None]
